FAERS Safety Report 22348662 (Version 2)
Quarter: 2023Q2

REPORT INFORMATION
  Report Type: Report from Study
  Country: BR (occurrence: BR)
  Receive Date: 20230522
  Receipt Date: 20230526
  Transmission Date: 20230721
  Serious: Yes (Hospitalization)
  Sender: FDA-Public Use
  Company Number: BR-CELLTRION INC.-2023BR010569

PATIENT

DRUGS (4)
  1. INFLIXIMAB [Suspect]
     Active Substance: INFLIXIMAB
     Indication: Crohn^s disease
     Dosage: 240 MG EVERY 2 MONTHS
     Route: 042
     Dates: start: 20220810
  2. ADALIMUMAB [Concomitant]
     Active Substance: ADALIMUMAB
     Indication: Crohn^s disease
     Dosage: 40 MG 1 AMPOULE EVERY 14 DAYS, (STARD DATE: 6 MONTHS AGO)
     Route: 058
  3. PREDNISONE [Concomitant]
     Active Substance: PREDNISONE
     Indication: Rheumatoid arthritis
     Dosage: 5 MG 1 PILL A DAY, (STARD DATE: 5 YEARS AGO)
     Route: 048
  4. METAMIZOLE SODIUM [Concomitant]
     Active Substance: METAMIZOLE SODIUM
     Indication: Rheumatoid arthritis
     Dosage: 500 MG 2 PILLS A DAY, (START DATE: 7 MONTHS AGO)
     Route: 048

REACTIONS (7)
  - Intra-abdominal fluid collection [Unknown]
  - Adverse reaction [Unknown]
  - Pruritus [Unknown]
  - Back pain [Unknown]
  - Rash macular [Unknown]
  - Incorrect dose administered [Unknown]
  - Underdose [Unknown]

NARRATIVE: CASE EVENT DATE: 20220810
